FAERS Safety Report 10027650 (Version 1)
Quarter: 2014Q1

REPORT INFORMATION
  Report Type: Spontaneous
  Country: IT (occurrence: None)
  Receive Date: 20140319
  Receipt Date: 20140319
  Transmission Date: 20141002
  Serious: Yes (Hospitalization)
  Sender: FDA-Public Use
  Company Number: 2014AP001952

PATIENT
  Age: 35 Year
  Sex: Female

DRUGS (2)
  1. LEVOFLOXACIN [Suspect]
     Indication: MENISCUS REMOVAL
     Route: 048
     Dates: start: 20140205, end: 20140209
  2. CLEXANE [Suspect]
     Indication: MENISCUS REMOVAL
     Dosage: SUBD, UNKNOWN
     Dates: start: 20140131, end: 20140209

REACTIONS (3)
  - Erythema [None]
  - Pruritus [None]
  - Rash [None]
